FAERS Safety Report 10601065 (Version 1)
Quarter: 2014Q4

REPORT INFORMATION
  Report Type: Spontaneous
  Country: US (occurrence: US)
  Receive Date: 20141124
  Receipt Date: 20141124
  Transmission Date: 20150529
  Serious: No
  Sender: FDA-Public Use
  Company Number: US-MYLANLABS-2014S1010979

PATIENT
  Age: 30 Year
  Sex: Female

DRUGS (4)
  1. ROPINIROLE. [Concomitant]
     Active Substance: ROPINIROLE
     Dosage: UNK
  2. AMLODIPINE BESYLATE TABLETS, USP [Suspect]
     Active Substance: AMLODIPINE BESYLATE
     Indication: HYPERTENSION
     Dosage: UNK
     Route: 048
     Dates: start: 20140506
  3. DOXYCYCLINE. [Suspect]
     Active Substance: DOXYCYCLINE
     Dosage: UNK
     Route: 048
     Dates: start: 20140506
  4. LISINOPRIL. [Concomitant]
     Active Substance: LISINOPRIL
     Dosage: UNK

REACTIONS (6)
  - Disturbance in attention [Not Recovered/Not Resolved]
  - Dyspnoea [Not Recovered/Not Resolved]
  - Dizziness [Not Recovered/Not Resolved]
  - Headache [Not Recovered/Not Resolved]
  - Abnormal dreams [Not Recovered/Not Resolved]
  - Diarrhoea [Not Recovered/Not Resolved]

NARRATIVE: CASE EVENT DATE: 20140507
